FAERS Safety Report 5308101-0 (Version None)
Quarter: 2007Q2

REPORT INFORMATION
  Report Type: 
  Country: None (occurrence: None)
  Receive Date: 20070426
  Receipt Date: 20070424
  Transmission Date: 20071010
  Serious: Yes (Life-Threatening)
  Sender: FDA-Public Use
  Company Number: PHHO2007ES04774

PATIENT
  Age: 36 Year
  Sex: Female
  Weight: 56 kg

DRUGS (3)
  1. RAD001 VS MMF [Suspect]
     Indication: HEART TRANSPLANT
     Dosage: 0.75 MG / DAY
     Dates: start: 20070316
  2. RAD001 VS MMF [Suspect]
     Dosage: 0.75 MG / DAY
     Route: 048
     Dates: start: 20070313, end: 20070315
  3. NEORAL [Suspect]
     Indication: HEART TRANSPLANT
     Route: 048
     Dates: start: 20070312

REACTIONS (6)
  - LEUKOCYTOSIS [None]
  - NEPHROPATHY TOXIC [None]
  - PYREXIA [None]
  - RENAL IMPAIRMENT [None]
  - RESPIRATORY TRACT INFECTION [None]
  - STAPHYLOCOCCAL INFECTION [None]
